FAERS Safety Report 7007255-8 (Version None)
Quarter: 2010Q3

REPORT INFORMATION
  Report Type: 
  Country: None (occurrence: None)
  Receive Date: 20100920
  Receipt Date: 20100907
  Transmission Date: 20110219
  Serious: Yes (Other)
  Sender: FDA-Public Use
  Company Number: 2010SP047929

PATIENT
  Age: 58 Year
  Sex: Male
  Weight: 170 kg

DRUGS (2)
  1. NASONEX [Suspect]
     Indication: TINNITUS
     Dosage: 1 DF;QD;NAS
     Route: 045
  2. SUDAFED 12 HOUR [Suspect]
     Indication: NASOPHARYNGITIS
     Dosage: ;  BID
     Dates: end: 20100423

REACTIONS (5)
  - FEELING HOT [None]
  - OEDEMA PERIPHERAL [None]
  - SKIN BURNING SENSATION [None]
  - SKIN EXFOLIATION [None]
  - SKIN TIGHTNESS [None]
